FAERS Safety Report 6477451-7 (Version None)
Quarter: 2009Q4

REPORT INFORMATION
  Report Type: 
  Country: None (occurrence: None)
  Receive Date: 20091207
  Receipt Date: 20091110
  Transmission Date: 20100525
  Serious: Yes (Hospitalization)
  Sender: FDA-Public Use
  Company Number: FR-SANOFI-AVENTIS-2009SA001240

PATIENT
  Age: 79 Year
  Sex: Male

DRUGS (5)
  1. PLAVIX [Suspect]
     Route: 048
     Dates: start: 20090910, end: 20090920
  2. OROKEN [Suspect]
     Indication: PHARYNGITIS BACTERIAL
     Route: 048
     Dates: start: 20090915, end: 20090919
  3. ALTEISDUO [Concomitant]
     Route: 048
  4. TAHOR [Concomitant]
     Route: 048
  5. ALLOPURINOL [Concomitant]
     Route: 048

REACTIONS (4)
  - ACQUIRED HAEMOPHILIA [None]
  - ANAEMIA [None]
  - PHARYNGITIS BACTERIAL [None]
  - SUBCUTANEOUS HAEMATOMA [None]
